FAERS Safety Report 6727014 (Version 3)
Quarter: 2024Q3

REPORT INFORMATION
  Report Type: Spontaneous
  Country: GR (occurrence: GR)
  Receive Date: 20080814
  Receipt Date: 20240707
  Transmission Date: 20241017
  Serious: Yes (Other)
  Sender: NOVARTIS
  Company Number: PHBS2008GR05341

PATIENT
  Age: 61 Year
  Sex: Male

DRUGS (7)
  1. ZOLEDRONIC ACID [Suspect]
     Active Substance: ZOLEDRONIC ACID
     Indication: Colorectal cancer metastatic
     Dosage: UNK, MONTHLY
     Route: 065
  2. IRINOTECAN HYDROCHLORIDE [Suspect]
     Active Substance: IRINOTECAN HYDROCHLORIDE
     Indication: Colorectal cancer metastatic
     Dosage: CYCLIC
     Route: 065
  3. DEXAMETHASONE [Suspect]
     Active Substance: DEXAMETHASONE
     Indication: Colorectal cancer metastatic
     Dosage: 6 MG, QD
     Route: 065
  4. CETUXIMAB [Suspect]
     Active Substance: CETUXIMAB
     Indication: Colorectal cancer metastatic
     Dosage: UNK (SECOND-LINE CHEMOTHERAPY)
     Route: 065
  5. PIPERACILLIN AND TAZOBACTAM [Concomitant]
     Active Substance: PIPERACILLIN SODIUM\TAZOBACTAM SODIUM
     Indication: Immunodeficiency
     Dosage: UNK
     Route: 042
  6. CIPROFLOXACIN [Concomitant]
     Active Substance: CIPROFLOXACIN
     Indication: Immunodeficiency
     Dosage: UNK
     Route: 042
  7. TEICOPLANIN [Concomitant]
     Active Substance: TEICOPLANIN
     Indication: Immunodeficiency
     Dosage: UNK
     Route: 042

REACTIONS (23)
  - Osteonecrosis of jaw [Recovering/Resolving]
  - Localised infection [Recovering/Resolving]
  - Sensation of foreign body [Recovering/Resolving]
  - Parotid gland enlargement [Recovering/Resolving]
  - Pain [Recovering/Resolving]
  - Oral discomfort [Recovering/Resolving]
  - Pyrexia [Recovering/Resolving]
  - Dysphagia [Recovering/Resolving]
  - Hypoalbuminaemia [Recovering/Resolving]
  - Soft tissue inflammation [Recovering/Resolving]
  - Myositis [Recovering/Resolving]
  - Erythema [Recovering/Resolving]
  - Trismus [Recovering/Resolving]
  - Bone disorder [Recovering/Resolving]
  - Mouth ulceration [Recovering/Resolving]
  - Inflammation [Recovering/Resolving]
  - Purulent discharge [Recovering/Resolving]
  - Escherichia infection [Recovering/Resolving]
  - Bacterial test positive [Recovering/Resolving]
  - Blood urea increased [Recovering/Resolving]
  - Red blood cell sedimentation rate increased [Recovering/Resolving]
  - C-reactive protein increased [Recovering/Resolving]
  - White blood cell count decreased [Unknown]
